FAERS Safety Report 4680698-3 (Version None)
Quarter: 2005Q2

REPORT INFORMATION
  Report Type: 
  Country: None (occurrence: None)
  Receive Date: 20050603
  Receipt Date: 20050527
  Transmission Date: 20051028
  Serious: Yes (Life-Threatening, Hospitalization, Other)
  Sender: FDA-Public Use
  Company Number: 2005UW08180

PATIENT
  Age: 48 Year
  Sex: Female
  Weight: 70.5 kg

DRUGS (9)
  1. SEROQUEL [Suspect]
     Indication: DEPRESSION
     Route: 048
     Dates: start: 19990101, end: 20050101
  2. PEG-INTRON [Suspect]
     Indication: HEPATITIS C
     Route: 058
     Dates: start: 20041230
  3. REBETOL [Suspect]
     Indication: HEPATITIS C
     Route: 048
     Dates: start: 20041230
  4. DILAUDID [Suspect]
  5. EFFEXOR XR [Concomitant]
     Indication: DEPRESSION
     Route: 048
  6. TRAZODONE HYDROCHLORIDE [Concomitant]
     Indication: DEPRESSION
     Route: 048
  7. ANALGESIC [Concomitant]
     Route: 048
  8. TOPAMAX [Concomitant]
     Indication: DEPRESSION
     Route: 048
  9. PREVACID [Concomitant]
     Indication: REFLUX OESOPHAGITIS
     Route: 048

REACTIONS (4)
  - ACCIDENTAL OVERDOSE [None]
  - DEPENDENCE [None]
  - DEPRESSION [None]
  - INTENTIONAL MISUSE [None]
